FAERS Safety Report 8658024 (Version 2)
Quarter: 2012Q4

REPORT INFORMATION
  Report Type: Report from Study
  Country: SE (occurrence: SE)
  Receive Date: 20120710
  Receipt Date: 20121120
  Transmission Date: 20130627
  Serious: Yes (Hospitalization, Other)
  Sender: FDA-Public Use
  Company Number: SE-TEVA-347046ISR

PATIENT
  Age: 72 Year
  Sex: Male

DRUGS (8)
  1. ENALAPRIL [Suspect]
  2. SAXAGLIPTIN [Suspect]
     Indication: TYPE 2 DIABETES MELLITUS
     Dates: start: 20110428
  3. NOVOMIX [Suspect]
     Indication: TYPE 2 DIABETES MELLITUS
  4. ASPIRIN [Concomitant]
     Indication: TYPE 2 DIABETES MELLITUS
  5. OMEPRAZOL [Concomitant]
     Dates: start: 20120309
  6. STATIN NOS [Concomitant]
  7. DIURETICS [Concomitant]
  8. CALCIUM ANTAGONIST [Concomitant]

REACTIONS (7)
  - Oesophageal stenosis [Recovered/Resolved]
  - Renal impairment [Recovered/Resolved]
  - Nephrosclerosis [None]
  - Blood potassium increased [None]
  - Blood creatinine increased [None]
  - Dehydration [None]
  - Urinary tract infection [None]
